FAERS Safety Report 10183457 (Version 4)
Quarter: 2015Q1

REPORT INFORMATION
  Report Type: Report from Study
  Country: US (occurrence: US)
  Receive Date: 20140520
  Receipt Date: 20150114
  Transmission Date: 20150720
  Serious: No
  Sender: FDA-Public Use
  Company Number: US-VERTEX PHARMACEUTICALS INC-2014-002326

PATIENT
  Sex: Female

DRUGS (2)
  1. IVACAFTOR [Suspect]
     Active Substance: IVACAFTOR
     Indication: CYSTIC FIBROSIS
     Dosage: 150 MG, BID
     Route: 048
     Dates: start: 20140317, end: 20141218
  2. ERYTHROMYCIN. [Concomitant]
     Active Substance: ERYTHROMYCIN
     Indication: BLOOD TEST ABNORMAL

REACTIONS (4)
  - Treatment noncompliance [Unknown]
  - Bronchial secretion retention [Unknown]
  - Dysphagia [Not Recovered/Not Resolved]
  - Drug dose omission [Unknown]
